FAERS Safety Report 8085368-X (Version None)
Quarter: 2012Q1

REPORT INFORMATION
  Report Type: 
  Country: None (occurrence: None)
  Receive Date: 20120128
  Receipt Date: 20110516
  Transmission Date: 20120608
  Serious: Yes (Other)
  Sender: FDA-Public Use
  Company Number: US-ABBOTT-10P-163-0690695-00

PATIENT
  Sex: Male
  Weight: 88.53 kg

DRUGS (1)
  1. HUMIRA [Suspect]
     Indication: PSORIATIC ARTHROPATHY
     Dates: start: 20101203, end: 20110422

REACTIONS (5)
  - ALANINE AMINOTRANSFERASE INCREASED [None]
  - HEADACHE [None]
  - ASPARTATE AMINOTRANSFERASE INCREASED [None]
  - DEMYELINATION [None]
  - THIRST [None]
